FAERS Safety Report 17756550 (Version 2)
Quarter: 2020Q2

REPORT INFORMATION
  Report Type: Report from Study
  Country: None (occurrence: ES)
  Receive Date: 20200507
  Receipt Date: 20200509
  Transmission Date: 20200714
  Serious: Yes (Death)
  Sender: FDA-Public Use
  Company Number: ES-ABBVIE-20K-144-3394479-00

PATIENT
  Age: 76 Year
  Sex: Female
  Weight: 55 kg

DRUGS (1)
  1. DUODOPA [Suspect]
     Active Substance: CARBIDOPA\LEVODOPA
     Indication: PARKINSON^S DISEASE
     Route: 050
     Dates: start: 20180614

REACTIONS (10)
  - Bedridden [Unknown]
  - Exostosis [Unknown]
  - Respiratory distress [Unknown]
  - On and off phenomenon [Unknown]
  - Parkinson^s disease [Unknown]
  - Erythema [Unknown]
  - Pulmonary oedema [Fatal]
  - Asthenia [Unknown]
  - Decreased appetite [Unknown]
  - Mental impairment [Unknown]

NARRATIVE: CASE EVENT DATE: 2020
